FAERS Safety Report 6025294-0 (Version None)
Quarter: 2008Q4

REPORT INFORMATION
  Report Type: 
  Country: None (occurrence: None)
  Receive Date: 20081231
  Receipt Date: 20081219
  Transmission Date: 20090506
  Serious: Yes (Hospitalization, Disabling, Other)
  Sender: FDA-Public Use
  Company Number: PHHY2008BR32767

PATIENT
  Sex: Female
  Weight: 78.5 kg

DRUGS (7)
  1. EXFORGE [Suspect]
     Indication: HYPERTENSION
     Dosage: UNK
     Route: 048
     Dates: start: 20050601
  2. PROPRANOLOL [Concomitant]
     Indication: HYPERTENSION
     Dosage: 2 TABS/NIGHT
     Route: 048
     Dates: start: 20050601
  3. PANTOPRAZOLE [Concomitant]
     Indication: GASTRIC DISORDER
     Dosage: 1 TAB IN THE MORNING
     Route: 048
     Dates: start: 20080601
  4. BROMOPRIDE [Concomitant]
     Indication: GASTRIC DISORDER
     Dosage: 1 TAB BEFORE MEALS
     Route: 048
  5. AMPLICTIL [Concomitant]
     Indication: ANTIDEPRESSANT THERAPY
     Dosage: 1/2 TABLET/NIGHT
     Route: 048
     Dates: start: 20080401
  6. TAMOXIFEN ^CT-ARZNEIMITTEL^ [Concomitant]
     Dosage: 1 TABLET/MORNING
     Route: 048
     Dates: start: 20050601
  7. SIMVASTATIN [Concomitant]
     Indication: BLOOD CHOLESTEROL
     Dosage: 1 TABLET/NIGHT
     Route: 048
     Dates: start: 20080601

REACTIONS (5)
  - BLOOD PRESSURE INCREASED [None]
  - DEPOSIT EYE [None]
  - EYE LASER SURGERY [None]
  - STRABISMUS [None]
  - VISUAL ACUITY REDUCED [None]
